FAERS Safety Report 9857694 (Version 1)
Quarter: 2014Q1

REPORT INFORMATION
  Report Type: Spontaneous
  Country: US (occurrence: US)
  Receive Date: 20140131
  Receipt Date: 20140131
  Transmission Date: 20141002
  Serious: No
  Sender: FDA-Public Use
  Company Number: US-BIOGENIDEC-2014BI009568

PATIENT
  Sex: Female

DRUGS (16)
  1. TYSABRI [Suspect]
     Indication: MULTIPLE SCLEROSIS
     Route: 042
     Dates: start: 20080219
  2. ROPINIROLE HCL [Concomitant]
     Route: 048
  3. VICODEN [Concomitant]
     Dates: end: 20130903
  4. BACLOFEN [Concomitant]
     Route: 048
  5. VALIUM [Concomitant]
     Route: 048
  6. TOPAMAX [Concomitant]
     Route: 048
  7. MAXALT [Concomitant]
     Route: 048
  8. CELEXA [Concomitant]
     Route: 048
  9. PROMETHAZINE HCL [Concomitant]
  10. PREMARIN [Concomitant]
     Route: 048
  11. ATENOLOL [Concomitant]
     Route: 048
  12. LEVOTHYROXINE SODIUM [Concomitant]
     Route: 048
  13. BONIVA [Concomitant]
  14. RANITIDINE HCL [Concomitant]
     Route: 048
  15. CYANOCOBALAMIN [Concomitant]
  16. CORAL CALCIUM [Concomitant]

REACTIONS (7)
  - Vitamin D decreased [Unknown]
  - Pain in extremity [Unknown]
  - Gait disturbance [Unknown]
  - Paraparesis [Unknown]
  - Hyporeflexia [Unknown]
  - Hypertension [Unknown]
  - Drug ineffective [Unknown]
